FAERS Safety Report 5708265-0 (Version None)
Quarter: 2008Q2

REPORT INFORMATION
  Report Type: 
  Country: None (occurrence: None)
  Receive Date: 20080414
  Receipt Date: 20080402
  Transmission Date: 20081010
  Serious: Yes (Hospitalization)
  Sender: FDA-Public Use
  Company Number: GXKR2008CA03244

PATIENT
  Age: 63 Year
  Sex: Male

DRUGS (8)
  1. NAPROXEN [Suspect]
     Dosage: 500 MG, BID
  2. TENOFOVIR(TENOFOVIR) UNKNOWN [Suspect]
     Indication: HIV INFECTION
  3. COCAINE (NGX)(COCAINE) UNKNOWN [Suspect]
  4. LAMIVUDINE [Concomitant]
  5. LOPINAVIR W/RITONAVIR (LOPINAVIR, RITONAVIR) [Concomitant]
  6. OLANZAPINE [Concomitant]
  7. PAROXETINE HCL [Concomitant]
  8. BUPROPION HCL [Concomitant]

REACTIONS (7)
  - DRUG ABUSE [None]
  - HAEMATEMESIS [None]
  - HEMIPARESIS [None]
  - NARCOTIC INTOXICATION [None]
  - PYREXIA [None]
  - RENAL FAILURE [None]
  - RHABDOMYOLYSIS [None]
